FAERS Safety Report 6582596-7 (Version None)
Quarter: 2010Q1

REPORT INFORMATION
  Report Type: 
  Country: None (occurrence: None)
  Receive Date: 20100212
  Receipt Date: 20100212
  Transmission Date: 20100710
  Serious: Yes (Hospitalization)
  Sender: FDA-Public Use
  Company Number: None

PATIENT
  Age: 63 Year
  Sex: Male
  Weight: 112.5 kg

DRUGS (1)
  1. METOPROLOL TARTRATE [Suspect]
     Indication: HYPERTENSION
     Dosage: 50 MG BID PO
     Route: 048
     Dates: start: 20090525

REACTIONS (5)
  - ASTHENIA [None]
  - BRADYCARDIA [None]
  - COORDINATION ABNORMAL [None]
  - HYPERHIDROSIS [None]
  - MIDDLE INSOMNIA [None]
